FAERS Safety Report 19246782 (Version 8)
Quarter: 2022Q1

REPORT INFORMATION
  Report Type: Spontaneous
  Country: US (occurrence: US)
  Receive Date: 20210512
  Receipt Date: 20220114
  Transmission Date: 20220423
  Serious: Yes (Other)
  Sender: FDA-Public Use
  Company Number: US-SA-SAC20210510001364

PATIENT
  Age: 29 Year
  Sex: Male

DRUGS (14)
  1. ALPROLIX [Suspect]
     Active Substance: EFTRENONACOG ALFA
     Indication: Factor IX deficiency
     Dosage: 10000 U, Q10D
     Route: 042
     Dates: start: 201809
  2. ALPROLIX [Suspect]
     Active Substance: EFTRENONACOG ALFA
     Indication: Factor IX deficiency
     Dosage: 10000 U, Q10D
     Route: 042
     Dates: start: 201809
  3. ALPROLIX [Suspect]
     Active Substance: EFTRENONACOG ALFA
     Indication: Prophylaxis
     Dosage: UNK UNK, QOW
     Route: 042
  4. ALPROLIX [Suspect]
     Active Substance: EFTRENONACOG ALFA
     Indication: Prophylaxis
     Dosage: UNK UNK, QOW
     Route: 042
  5. ALPROLIX [Suspect]
     Active Substance: EFTRENONACOG ALFA
     Dosage: 10000 U, Q10D
     Route: 042
     Dates: start: 20210226
  6. ALPROLIX [Suspect]
     Active Substance: EFTRENONACOG ALFA
     Dosage: 10000 U, Q10D
     Route: 042
     Dates: start: 20210226
  7. ALPROLIX [Suspect]
     Active Substance: EFTRENONACOG ALFA
     Dosage: 12000 U, QOW AND PRN
     Route: 042
     Dates: start: 20210226
  8. ALPROLIX [Suspect]
     Active Substance: EFTRENONACOG ALFA
     Dosage: 12000 U, QOW AND PRN
     Route: 042
     Dates: start: 20210226
  9. ALPROLIX [Suspect]
     Active Substance: EFTRENONACOG ALFA
     Dosage: 10000 U, QOW
     Route: 042
     Dates: start: 20210226
  10. ALPROLIX [Suspect]
     Active Substance: EFTRENONACOG ALFA
     Dosage: 10000 U, QOW
     Route: 042
     Dates: start: 20210226
  11. ALPROLIX [Suspect]
     Active Substance: EFTRENONACOG ALFA
     Dosage: 138000 IU, 1X
     Route: 042
     Dates: start: 20211008, end: 20211008
  12. ALPROLIX [Suspect]
     Active Substance: EFTRENONACOG ALFA
     Dosage: 138000 IU, 1X
     Route: 042
     Dates: start: 20211008, end: 20211008
  13. ALPROLIX [Suspect]
     Active Substance: EFTRENONACOG ALFA
     Dosage: 6000 IU
     Route: 042
     Dates: start: 20220101, end: 20220101
  14. ALPROLIX [Suspect]
     Active Substance: EFTRENONACOG ALFA
     Dosage: 6000 IU
     Route: 042
     Dates: start: 20220101, end: 20220101

REACTIONS (7)
  - Haemorrhage [Unknown]
  - Traumatic haemorrhage [Unknown]
  - Fall [Unknown]
  - Tooth disorder [Unknown]
  - Feeling abnormal [Unknown]
  - Intentional product misuse [Unknown]
  - Extra dose administered [Unknown]

NARRATIVE: CASE EVENT DATE: 20210828
